FAERS Safety Report 9558413 (Version 1)
Quarter: 2013Q3

REPORT INFORMATION
  Report Type: Spontaneous
  Country: CO (occurrence: CO)
  Receive Date: 20130926
  Receipt Date: 20130926
  Transmission Date: 20140515
  Serious: Yes (Other)
  Sender: FDA-Public Use
  Company Number: PHHY2013CO105777

PATIENT
  Age: 4 Year
  Sex: Female

DRUGS (1)
  1. CEFTRIAXONE [Suspect]
     Indication: SINUSITIS
     Dosage: 100 MG/KG/DAY

REACTIONS (8)
  - Bile duct stone [Recovered/Resolved]
  - Cholelithiasis [Recovered/Resolved]
  - Cholangitis [Recovered/Resolved]
  - Abdominal pain [Recovered/Resolved]
  - Pyrexia [Recovered/Resolved]
  - Vomiting [Recovered/Resolved]
  - Chromaturia [Recovered/Resolved]
  - Cholecystitis [Recovered/Resolved]
